FAERS Safety Report 5185062-9 (Version None)
Quarter: 2006Q4

REPORT INFORMATION
  Report Type: 
  Country: None (occurrence: None)
  Receive Date: 20061220
  Receipt Date: 20060525
  Transmission Date: 20070319
  Serious: No
  Sender: FDA-Public Use
  Company Number: US-GLAXOSMITHKLINE-A0606917A

PATIENT
  Age: 59 Year
  Sex: Female

DRUGS (2)
  1. EQUATE NTS 21MG [Suspect]
  2. EQUATE NTS 14MG [Suspect]

REACTIONS (2)
  - DRUG INEFFECTIVE [None]
  - NICOTINE DEPENDENCE [None]
